FAERS Safety Report 4285089-5 (Version None)
Quarter: 2004Q1

REPORT INFORMATION
  Report Type: 
  Country: None (occurrence: None)
  Receive Date: 20040202
  Receipt Date: 20040122
  Transmission Date: 20041129
  Serious: Yes (Death, Hospitalization)
  Sender: FDA-Public Use
  Company Number: 2004-01-1741

PATIENT
  Age: 47 Year
  Sex: Male

DRUGS (5)
  1. PEG-INTRON [Suspect]
     Indication: HEPATITIS C
     Dosage: 150 MCG QW SUBCUTANEOUS
     Route: 058
  2. REBETOL [Suspect]
     Indication: HEPATITIS C
     Dosage: 1200 MG QD ORAL
     Route: 048
  3. DIDANOSINE  ENTERIC COATED TABLETS [Suspect]
     Indication: HIV INFECTION
     Dosage: 400 MG QD ORAL
     Route: 048
  4. TENOFOVIR (PMPA) [Concomitant]
  5. KALETRA [Concomitant]

REACTIONS (7)
  - BOWEL SOUNDS ABNORMAL [None]
  - HEPATIC ENCEPHALOPATHY [None]
  - HEPATIC FAILURE [None]
  - INFLUENZA LIKE ILLNESS [None]
  - LACTIC ACIDOSIS [None]
  - PANCREATITIS [None]
  - RENAL FAILURE [None]
